FAERS Safety Report 8438370-X (Version None)
Quarter: 2012Q2

REPORT INFORMATION
  Report Type: 
  Country: None (occurrence: None)
  Receive Date: 20120614
  Receipt Date: 20120606
  Transmission Date: 20120825
  Serious: Yes (Other)
  Sender: FDA-Public Use
  Company Number: JP-MERCK-1206USA01524

PATIENT
  Age: 63 Year
  Sex: Male

DRUGS (5)
  1. ITRACONAZOLE [Suspect]
     Route: 048
  2. ITRACONAZOLE [Suspect]
     Route: 048
  3. PREDNISOLONE [Concomitant]
     Route: 048
  4. PEPCID [Suspect]
     Route: 048
  5. CEFCAPENE PIVOXIL HYDROCHLORIDE [Concomitant]
     Route: 048

REACTIONS (1)
  - DRUG INTERACTION [None]
